FAERS Safety Report 17779173 (Version 2)
Quarter: 2020Q2

REPORT INFORMATION
  Report Type: Report from Study
  Country: SG (occurrence: SG)
  Receive Date: 20200513
  Receipt Date: 20200609
  Transmission Date: 20200714
  Serious: Yes (Hospitalization)
  Sender: FDA-Public Use
  Company Number: NVSC2020SG075088

PATIENT
  Age: 53 Year
  Sex: Female
  Weight: 42.2 kg

DRUGS (3)
  1. BYL719 [Suspect]
     Active Substance: ALPELISIB
     Indication: BREAST CANCER
     Dosage: 200 MG
     Route: 048
     Dates: start: 20190828, end: 20200303
  2. SIVEXTRO [Concomitant]
     Active Substance: TEDIZOLID PHOSPHATE
     Indication: SEPSIS
     Route: 065
  3. MEROPENEM. [Concomitant]
     Active Substance: MEROPENEM
     Indication: SEPSIS
     Dosage: UNK
     Route: 065

REACTIONS (4)
  - Malaise [Not Recovered/Not Resolved]
  - Hyperglycaemia [Recovering/Resolving]
  - Renal impairment [Recovered/Resolved]
  - Diabetic ketoacidosis [Recovered/Resolved with Sequelae]

NARRATIVE: CASE EVENT DATE: 20190925
